FAERS Safety Report 8556980-6 (Version None)
Quarter: 2012Q3

REPORT INFORMATION
  Report Type: 
  Country: None (occurrence: None)
  Receive Date: 20120801
  Receipt Date: 20120723
  Transmission Date: 20120928
  Serious: Yes (Other)
  Sender: FDA-Public Use
  Company Number: US-JNJFOC-20120712267

PATIENT
  Sex: Male
  Weight: 91.17 kg

DRUGS (8)
  1. LYRICA [Concomitant]
     Indication: NEUROPATHY PERIPHERAL
     Route: 048
  2. SOMA [Concomitant]
     Indication: MUSCLE RELAXANT THERAPY
     Route: 048
  3. PHENERGAN HCL [Concomitant]
     Indication: NAUSEA
     Route: 048
  4. XANAX [Concomitant]
     Indication: ANXIETY
     Route: 048
  5. FENTANYL CITRATE [Suspect]
     Indication: PRODUCT USED FOR UNKNOWN INDICATION
     Route: 062
     Dates: start: 20040101
  6. FENTANYL-100 [Suspect]
     Indication: PAIN
     Dosage: TREATED WITH 100 UG/HR AND 50 UG/HR
     Route: 062
  7. ROXICODONE [Concomitant]
     Indication: PAIN
     Route: 048
  8. NEXIUM [Concomitant]
     Indication: GASTROOESOPHAGEAL REFLUX DISEASE
     Route: 048

REACTIONS (5)
  - HYPERTENSION [None]
  - IRRITABLE BOWEL SYNDROME [None]
  - THYROID DISORDER [None]
  - DRUG EFFECT DECREASED [None]
  - PRODUCT QUALITY ISSUE [None]
